FAERS Safety Report 24533841 (Version 2)
Quarter: 2025Q4

REPORT INFORMATION
  Report Type: Spontaneous
  Country: US (occurrence: US)
  Receive Date: 20241022
  Receipt Date: 20251113
  Transmission Date: 20260118
  Serious: No
  Sender: ALIMERA
  Company Number: US-ALIMERA SCIENCES INC.-US-A16013-24-000433

PATIENT
  Age: 59 Year
  Sex: Male

DRUGS (3)
  1. ILUVIEN [Suspect]
     Active Substance: FLUOCINOLONE ACETONIDE
     Indication: Macular oedema
     Dosage: 0.25 MILLIGRAM,QD - LEFT EYE
     Route: 031
     Dates: start: 20240604, end: 20240604
  2. ILUVIEN [Suspect]
     Active Substance: FLUOCINOLONE ACETONIDE
     Indication: Type 2 diabetes mellitus
  3. ILUVIEN [Suspect]
     Active Substance: FLUOCINOLONE ACETONIDE
     Indication: Diabetic retinopathy

REACTIONS (2)
  - Device failure [Unknown]
  - Circumstance or information capable of leading to medication error [Recovered/Resolved]

NARRATIVE: CASE EVENT DATE: 20240604
